FAERS Safety Report 8255234-5 (Version None)
Quarter: 2012Q2

REPORT INFORMATION
  Report Type: 
  Country: None (occurrence: None)
  Receive Date: 20120403
  Receipt Date: 20120320
  Transmission Date: 20120825
  Serious: Yes (Death)
  Sender: FDA-Public Use
  Company Number: GB-MYLANLABS-2012S1006327

PATIENT
  Age: 34 Year
  Sex: Male

DRUGS (8)
  1. ALBUTEROL [Concomitant]
     Route: 065
  2. CHLORHEXIDINE GLUCONATE [Concomitant]
     Route: 065
  3. CLOZAPINE [Suspect]
     Dosage: 350MG
     Route: 048
  4. OLANZAPINE [Concomitant]
     Dosage: AT 22:00
     Route: 065
  5. SERTRALINE HYDROCHLORIDE [Concomitant]
     Dosage: AT 08:00
     Route: 065
  6. FERROUS SULFATE TAB [Concomitant]
     Route: 065
  7. OMEPRAZOLE [Concomitant]
     Route: 065
  8. BECLOMETHASONE DIPROPIONATE [Concomitant]
     Route: 065

REACTIONS (2)
  - CARDIOPULMONARY FAILURE [None]
  - DEATH [None]
